FAERS Safety Report 23405090 (Version 1)
Quarter: 2024Q1

REPORT INFORMATION
  Report Type: Spontaneous
  Country: NL (occurrence: NL)
  Receive Date: 20240116
  Receipt Date: 20240116
  Transmission Date: 20240410
  Serious: Yes (Life-Threatening, Other)
  Sender: FDA-Public Use
  Company Number: NL-PFIZER INC-PV202400003443

PATIENT
  Age: 31 Year
  Sex: Female

DRUGS (8)
  1. HYDROCORTISONE SODIUM SUCCINATE [Suspect]
     Active Substance: HYDROCORTISONE SODIUM SUCCINATE
     Indication: Autoinflammatory disease
     Dosage: 100 MG
  2. HYDROCORTISONE SODIUM SUCCINATE [Suspect]
     Active Substance: HYDROCORTISONE SODIUM SUCCINATE
     Indication: Skin necrosis
  3. HYDROCORTISONE SODIUM SUCCINATE [Suspect]
     Active Substance: HYDROCORTISONE SODIUM SUCCINATE
     Indication: Fasciitis
  4. PREDNISONE [Suspect]
     Active Substance: PREDNISONE
     Indication: Fasciitis
     Dosage: 50 MG
  5. PREDNISONE [Suspect]
     Active Substance: PREDNISONE
     Indication: Skin necrosis
     Dosage: 60 MG
  6. PREDNISONE [Suspect]
     Active Substance: PREDNISONE
     Dosage: 30 MG
  7. HUMAN IMMUNOGLOBULIN G [Suspect]
     Active Substance: HUMAN IMMUNOGLOBULIN G
     Indication: Fasciitis
     Dosage: UNK
     Route: 042
  8. HUMAN IMMUNOGLOBULIN G [Suspect]
     Active Substance: HUMAN IMMUNOGLOBULIN G
     Indication: Skin necrosis

REACTIONS (1)
  - Drug ineffective [Recovering/Resolving]
